FAERS Safety Report 19815414 (Version 1)
Quarter: 2021Q3

REPORT INFORMATION
  Report Type: Spontaneous
  Country: CH (occurrence: CH)
  Receive Date: 20210909
  Receipt Date: 20210909
  Transmission Date: 20211014
  Serious: Yes (Life-Threatening, Other)
  Sender: FDA-Public Use
  Company Number: CH-MYLANLABS-2021M1059689

PATIENT
  Age: 27 Year
  Sex: Female

DRUGS (4)
  1. BRUFEN [Suspect]
     Active Substance: IBUPROFEN
     Indication: PROCEDURAL PAIN
     Dosage: 600 MILLIGRAM, Q8H
     Route: 048
     Dates: start: 20210702, end: 20210704
  2. BRUFEN [Suspect]
     Active Substance: IBUPROFEN
     Dosage: 600 MILLIGRAM, PRN (AS NECESSARY)
     Route: 048
     Dates: start: 202107
  3. COMIRNATY [Suspect]
     Active Substance: TOZINAMERAN
     Indication: COVID-19 IMMUNISATION
     Dosage: 1 DOSAGE FORM
     Route: 030
     Dates: start: 20210712, end: 20210712
  4. NOVALGIN (METAMIZOLE SODIUM) [Suspect]
     Active Substance: METAMIZOLE SODIUM
     Indication: PROCEDURAL PAIN
     Dosage: 20 GTT DROPS
     Route: 048
     Dates: start: 20210702, end: 202107

REACTIONS (4)
  - Agranulocytosis [Recovered/Resolved]
  - Cardiopulmonary failure [Unknown]
  - Tonsillitis [Unknown]
  - Pyrexia [Unknown]

NARRATIVE: CASE EVENT DATE: 20210715
